FAERS Safety Report 25487548 (Version 1)
Quarter: 2025Q2

REPORT INFORMATION
  Report Type: Spontaneous
  Country: US (occurrence: US)
  Receive Date: 20250627
  Receipt Date: 20250627
  Transmission Date: 20250717
  Serious: Yes (Life-Threatening, Other)
  Sender: ALKEM
  Company Number: US-ALKEM LABORATORIES LIMITED-CZ-ALKEM-2025-06379

PATIENT
  Age: 68 Year
  Sex: Male

DRUGS (13)
  1. QUETIAPINE FUMARATE [Suspect]
     Active Substance: QUETIAPINE FUMARATE
     Indication: Delirium
     Dosage: 25 MILLIGRAM, BID
     Route: 065
  2. QUETIAPINE FUMARATE [Suspect]
     Active Substance: QUETIAPINE FUMARATE
     Indication: Agitation
  3. ACETAMINOPHEN [Suspect]
     Active Substance: ACETAMINOPHEN
     Indication: Pyrexia
     Route: 065
  4. CEFEPIME [Concomitant]
     Active Substance: CEFEPIME HYDROCHLORIDE
     Indication: Pyrexia
     Route: 065
  5. DEXMEDETOMIDINE [Concomitant]
     Active Substance: DEXMEDETOMIDINE
     Indication: Sedative therapy
     Route: 042
  6. DEXMEDETOMIDINE [Concomitant]
     Active Substance: DEXMEDETOMIDINE
     Route: 042
  7. DEXMEDETOMIDINE [Concomitant]
     Active Substance: DEXMEDETOMIDINE
     Route: 042
  8. FENTANYL [Concomitant]
     Active Substance: FENTANYL
     Indication: Sedative therapy
     Route: 065
  9. FENTANYL [Concomitant]
     Active Substance: FENTANYL
     Route: 065
  10. MICAFUNGIN [Concomitant]
     Active Substance: MICAFUNGIN SODIUM
     Indication: Pyrexia
     Route: 065
  11. MIDAZOLAM [Concomitant]
     Active Substance: MIDAZOLAM
     Indication: Sedative therapy
     Route: 042
  12. MIDAZOLAM [Concomitant]
     Active Substance: MIDAZOLAM
     Route: 042
  13. VANCOMYCIN [Concomitant]
     Active Substance: VANCOMYCIN
     Indication: Pyrexia
     Route: 065

REACTIONS (8)
  - Hypoxia [Unknown]
  - Ventricular dyssynchrony [Unknown]
  - Airway peak pressure increased [Unknown]
  - Tachypnoea [Unknown]
  - Alveolar oxygen partial pressure increased [Unknown]
  - Tachycardia [Recovered/Resolved]
  - Neuroleptic malignant syndrome [Recovering/Resolving]
  - Therapy non-responder [Unknown]
